FAERS Safety Report 6309455-9 (Version None)
Quarter: 2009Q3

REPORT INFORMATION
  Report Type: 
  Country: None (occurrence: None)
  Receive Date: 20090814
  Receipt Date: 20090810
  Transmission Date: 20100115
  Serious: Yes (Other)
  Sender: FDA-Public Use
  Company Number: US-JNJFOC-20090705826

PATIENT

DRUGS (2)
  1. LEVAQUIN [Suspect]
     Route: 065
  2. LEVAQUIN [Suspect]
     Indication: KIDNEY INFECTION
     Route: 065

REACTIONS (2)
  - MUSCULAR WEAKNESS [None]
  - TENDONITIS [None]
